FAERS Safety Report 15535465 (Version 1)
Quarter: 2018Q4

REPORT INFORMATION
  Report Type: Spontaneous
  Country: US (occurrence: US)
  Receive Date: 20181022
  Receipt Date: 20181022
  Transmission Date: 20190205
  Serious: No
  Sender: FDA-Public Use
  Company Number: US-TEVA-2018-US-964156

PATIENT
  Age: 80 Year
  Sex: Female

DRUGS (2)
  1. VITAMIN C [Concomitant]
     Active Substance: ASCORBIC ACID
  2. EZETIMIBE W/SIMVASTATIN [Suspect]
     Active Substance: EZETIMIBE
     Dosage: DOSE STRENGTH : 10/20 MG
     Route: 065

REACTIONS (3)
  - Wheelchair user [Unknown]
  - Product substitution issue [Unknown]
  - Drug ineffective [Unknown]
